FAERS Safety Report 8329240-6 (Version None)
Quarter: 2012Q2

REPORT INFORMATION
  Report Type: 
  Country: None (occurrence: None)
  Receive Date: 20120502
  Receipt Date: 20120418
  Transmission Date: 20120825
  Serious: No
  Sender: FDA-Public Use
  Company Number: CN-JNJFOC-20120500598

PATIENT
  Sex: Male
  Weight: 55 kg

DRUGS (4)
  1. FENTANYL [Suspect]
     Indication: TUMOUR PAIN
     Dosage: 4.2 MG
     Route: 062
     Dates: start: 20110219, end: 20110301
  2. FENTANYL [Suspect]
     Indication: NEOPLASM MALIGNANT
     Route: 062
  3. FENTANYL [Suspect]
     Dosage: 4.2 MG
     Route: 062
     Dates: start: 20110219, end: 20110301
  4. FENTANYL [Suspect]
     Route: 062

REACTIONS (2)
  - CONSTIPATION [None]
  - INAPPROPRIATE SCHEDULE OF DRUG ADMINISTRATION [None]
